FAERS Safety Report 24737900 (Version 1)
Quarter: 2024Q4

REPORT INFORMATION
  Report Type: Spontaneous
  Country: US (occurrence: US)
  Receive Date: 20241216
  Receipt Date: 20241216
  Transmission Date: 20250115
  Serious: Yes (Disabling, Other)
  Sender: REGENERON
  Company Number: US-REGENERON PHARMACEUTICALS, INC.-2024-172090

PATIENT
  Sex: Male

DRUGS (3)
  1. EYLEA HD [Suspect]
     Active Substance: AFLIBERCEPT
     Indication: Age-related macular degeneration
     Dosage: 8 MG INTO RIGHT EYE, FORMULATION: EYLEA HD VIAL, FIRST LOADING DOSE
     Route: 031
     Dates: start: 2024, end: 2024
  2. EYLEA HD [Suspect]
     Active Substance: AFLIBERCEPT
     Dosage: 8 MG INTO RIGHT EYE, FORMULATION: EYLEA HD VIAL, SECOND LOADING DOSE
     Route: 031
     Dates: start: 20240829, end: 20240829
  3. EYLEA HD [Suspect]
     Active Substance: AFLIBERCEPT
     Dosage: 8 MG INTO RIGHT EYE, FORMULATION: EYLEA HD VIAL, THIRD LOADING DOSE
     Route: 031
     Dates: start: 20241119, end: 20241119

REACTIONS (3)
  - Blindness unilateral [Unknown]
  - Retinal haemorrhage [Unknown]
  - Retinal pigment epithelial tear [Unknown]

NARRATIVE: CASE EVENT DATE: 20240101
